FAERS Safety Report 13567374 (Version 1)
Quarter: 2017Q2

REPORT INFORMATION
  Report Type: Report from Study
  Country: US (occurrence: US)
  Receive Date: 20170522
  Receipt Date: 20170522
  Transmission Date: 20170830
  Serious: Yes (Other)
  Sender: FDA-Public Use
  Company Number: PHEH2017US014824

PATIENT
  Sex: Female
  Weight: 79.37 kg

DRUGS (1)
  1. ILARIS [Suspect]
     Active Substance: CANAKINUMAB
     Indication: RHEUMATOID ARTHRITIS
     Dosage: 300 MG, EVERY 28 DAYS
     Route: 058

REACTIONS (2)
  - Localised infection [Unknown]
  - Product use in unapproved indication [Unknown]
